FAERS Safety Report 10996350 (Version 3)
Quarter: 2015Q2

REPORT INFORMATION
  Report Type: Report from Study
  Country: JP (occurrence: JP)
  Receive Date: 20150408
  Receipt Date: 20150427
  Transmission Date: 20150821
  Serious: Yes (Hospitalization)
  Sender: FDA-Public Use
  Company Number: JP-ROCHE-1559726

PATIENT
  Age: 59 Year
  Sex: Female
  Weight: 55 kg

DRUGS (23)
  1. PERTUZUMAB [Suspect]
     Active Substance: PERTUZUMAB
     Indication: HER-2 POSITIVE BREAST CANCER
     Dosage: LOADING DOSE
     Route: 042
     Dates: start: 20141222
  2. KENALOG IN ORABASE [Concomitant]
     Active Substance: TRIAMCINOLONE ACETONIDE
     Indication: STOMATITIS
     Route: 065
     Dates: start: 20141020
  3. CYCLOPHOSPHAMIDE. [Suspect]
     Active Substance: CYCLOPHOSPHAMIDE
     Indication: HER-2 POSITIVE BREAST CANCER
     Route: 065
     Dates: start: 20140929
  4. DECADRON [Concomitant]
     Active Substance: DEXAMETHASONE
     Indication: PROPHYLAXIS OF NAUSEA AND VOMITING
     Route: 065
     Dates: start: 20140930
  5. WYPAX [Concomitant]
     Active Substance: LORAZEPAM
     Indication: PROPHYLAXIS OF NAUSEA AND VOMITING
     Route: 065
     Dates: start: 20140929, end: 20150127
  6. GLYMESASON [Concomitant]
     Active Substance: DEXAMETHASONE
     Indication: SKIN DISORDER
     Route: 065
     Dates: start: 20150114
  7. LOCOID CREAM [Concomitant]
     Indication: SKIN DISORDER
     Route: 065
     Dates: start: 20150125
  8. EMEND [Concomitant]
     Active Substance: APREPITANT
     Indication: PROPHYLAXIS OF NAUSEA AND VOMITING
     Route: 065
     Dates: start: 20140929
  9. DECADRON (DEXAMETHASONE SODIUM PHOSPHATE) [Concomitant]
     Active Substance: DEXAMETHASONE SODIUM PHOSPHATE
     Indication: PROPHYLAXIS OF NAUSEA AND VOMITING
     Route: 065
     Dates: start: 20140929
  10. TRASTUZUMAB [Suspect]
     Active Substance: TRASTUZUMAB
     Indication: HER-2 POSITIVE BREAST CANCER
     Dosage: LOADING DOSE
     Route: 042
     Dates: start: 20141222
  11. DOCETAXEL. [Suspect]
     Active Substance: DOCETAXEL
     Indication: HER-2 POSITIVE BREAST CANCER
     Dosage: DOSE OF LAST TAXANE ADMINISTERED 115 MG?DATE OF MOST RECENT DOSE OF TAXANE PRIOR TO?AE ONSET 25/FEB/
     Route: 042
     Dates: start: 20141222
  12. DOXORUBICIN [Suspect]
     Active Substance: DOXORUBICIN
     Indication: HER-2 POSITIVE BREAST CANCER
     Route: 065
     Dates: start: 20140929
  13. DERMOVATE CREAM [Concomitant]
     Indication: SKIN DISORDER
     Route: 065
     Dates: start: 20150114
  14. GASTER [Concomitant]
     Active Substance: FAMOTIDINE
     Route: 065
     Dates: start: 20140929, end: 20150130
  15. ALLEGRA [Concomitant]
     Active Substance: FEXOFENADINE HYDROCHLORIDE
     Route: 065
     Dates: start: 20141227
  16. PERTUZUMAB [Suspect]
     Active Substance: PERTUZUMAB
     Dosage: MAINTAINNENCE DOSE?DOSE OF LAST PERTUZUMAB ADMINISTERED 420 MG?DATE OF MOST RECENT DOSE OF PERTUZUMA
     Route: 042
  17. CRAVIT [Concomitant]
     Active Substance: LEVOFLOXACIN
     Indication: PARONYCHIA
     Route: 065
     Dates: start: 20150310
  18. MAGNESIUM OXIDE. [Concomitant]
     Active Substance: MAGNESIUM OXIDE
     Indication: CONSTIPATION
     Route: 065
     Dates: start: 20141110, end: 20150111
  19. AZ COMBINATION FINE GRANULES FOR GARGLE [Concomitant]
     Indication: STOMATITIS
     Route: 065
     Dates: start: 20141020
  20. HEPARINOID [Concomitant]
     Active Substance: CHONDROITIN SULFATE (BOVINE)
     Indication: SKIN DISORDER
     Route: 065
     Dates: start: 20150104
  21. TRASTUZUMAB [Suspect]
     Active Substance: TRASTUZUMAB
     Dosage: DOSE OF LAST TRASTUZUMAB 320 MG?DATE OF MOST RECENT DOSE OF TRASTUZUMAB 18 MAR 2015
     Route: 042
  22. DECADRON [Concomitant]
     Active Substance: DEXAMETHASONE
     Indication: OEDEMA
  23. LIDOCAINE HYDROCHLORIDE. [Concomitant]
     Active Substance: LIDOCAINE HYDROCHLORIDE
     Indication: STOMATITIS
     Route: 065
     Dates: start: 20150114

REACTIONS (1)
  - Arrhythmia [Not Recovered/Not Resolved]

NARRATIVE: CASE EVENT DATE: 20150204
